FAERS Safety Report 10717173 (Version 1)
Quarter: 2015Q1

REPORT INFORMATION
  Report Type: Spontaneous
  Country: US (occurrence: US)
  Receive Date: 20150116
  Receipt Date: 20150116
  Transmission Date: 20150721
  Serious: Yes (Death)
  Sender: FDA-Public Use
  Company Number: US-BAYER-2015-003789

PATIENT
  Age: 30 Year
  Sex: Male

DRUGS (4)
  1. DIPHENHYDRAMINE HYDROCHLORIDE. [Suspect]
     Active Substance: DIPHENHYDRAMINE HYDROCHLORIDE
  2. HEROIN [Suspect]
     Active Substance: DIACETYLMORPHINE
  3. ETHANOL [Suspect]
     Active Substance: ALCOHOL
  4. CAFFEINE. [Suspect]
     Active Substance: CAFFEINE

REACTIONS (1)
  - Medication error [Fatal]
